FAERS Safety Report 4459349-9 (Version None)
Quarter: 2004Q3

REPORT INFORMATION
  Report Type: 
  Country: None (occurrence: None)
  Receive Date: 20040923
  Receipt Date: 20040910
  Transmission Date: 20050211
  Serious: Yes (Other)
  Sender: FDA-Public Use
  Company Number: 200410465BFR

PATIENT
  Age: 64 Year
  Sex: Male

DRUGS (5)
  1. MOXIFLOXACIN HYDROCHLORIDE [Suspect]
     Indication: ASTHMA
     Dosage: 400 MG, TOTAL DAILY, ORAL
     Route: 048
     Dates: start: 20040902, end: 20040906
  2. KETEK [Concomitant]
  3. PREVISCAN [Concomitant]
  4. COZAAR [Concomitant]
  5. AMIODARONE HYDROCHLORIDE [Concomitant]

REACTIONS (5)
  - DISTURBANCE IN ATTENTION [None]
  - HAEMOTHORAX [None]
  - INCOHERENT [None]
  - INSOMNIA [None]
  - MUSCLE RUPTURE [None]
